FAERS Safety Report 9305943 (Version 1)
Quarter: 2013Q2

REPORT INFORMATION
  Report Type: Report from Study
  Country: CA (occurrence: CA)
  Receive Date: 20130523
  Receipt Date: 20130523
  Transmission Date: 20140414
  Serious: Yes (Other)
  Sender: FDA-Public Use
  Company Number: CA-JNJFOC-20130314593

PATIENT
  Age: 55 Year
  Sex: Female
  Weight: 60.9 kg

DRUGS (23)
  1. REMICADE [Suspect]
     Indication: BEHCET^S SYNDROME
     Route: 042
     Dates: start: 20100518
  2. REMICADE [Suspect]
     Indication: BEHCET^S SYNDROME
     Route: 042
     Dates: start: 20130320
  3. REMICADE [Suspect]
     Indication: BEHCET^S SYNDROME
     Route: 042
     Dates: start: 20130415
  4. REMICADE [Suspect]
     Indication: BEHCET^S SYNDROME
     Dosage: 28TH INFUSION
     Route: 042
     Dates: start: 20130513
  5. REMICADE [Suspect]
     Indication: CROHN^S DISEASE
     Route: 042
     Dates: start: 20100518
  6. REMICADE [Suspect]
     Indication: CROHN^S DISEASE
     Route: 042
     Dates: start: 20130320
  7. REMICADE [Suspect]
     Indication: CROHN^S DISEASE
     Dosage: 28TH INFUSION
     Route: 042
     Dates: start: 20130513
  8. REMICADE [Suspect]
     Indication: CROHN^S DISEASE
     Route: 042
     Dates: start: 20130415
  9. SOLUCORTEF [Concomitant]
     Indication: PREMEDICATION
     Route: 042
     Dates: start: 20130513
  10. STATEX [Concomitant]
     Route: 065
  11. XANAX [Concomitant]
     Route: 065
  12. ALPRAZOLAM [Concomitant]
     Route: 065
  13. MORPHINE [Concomitant]
     Route: 065
  14. IMOVANE [Concomitant]
     Route: 065
  15. ATIVAN [Concomitant]
     Route: 065
  16. MULTIVITAMINS [Concomitant]
     Route: 065
  17. ZOFRAN [Concomitant]
     Route: 065
  18. TRAZODONE [Concomitant]
     Route: 065
  19. CALCIUM [Concomitant]
     Route: 065
  20. VITAMIN D [Concomitant]
     Route: 065
  21. TYLENOL [Concomitant]
     Indication: PREMEDICATION
     Route: 048
     Dates: start: 20130513
  22. REACTINE [Concomitant]
     Indication: PREMEDICATION
     Route: 065
     Dates: start: 20130513
  23. BENADRYL [Concomitant]
     Indication: PREMEDICATION
     Route: 042

REACTIONS (7)
  - Infusion related reaction [Recovered/Resolved]
  - Chest discomfort [Recovered/Resolved]
  - Dyspnoea [Recovered/Resolved]
  - Blood iron decreased [Recovered/Resolved]
  - Haemoglobin decreased [Recovered/Resolved]
  - Chest discomfort [Recovered/Resolved]
  - Off label use [Not Recovered/Not Resolved]
